FAERS Safety Report 4683285-6 (Version None)
Quarter: 2005Q2

REPORT INFORMATION
  Report Type: 
  Country: None (occurrence: None)
  Receive Date: 20050606
  Receipt Date: 20050606
  Transmission Date: 20051028
  Serious: Yes (Life-Threatening, Hospitalization)
  Sender: FDA-Public Use
  Company Number: None

PATIENT
  Age: 72 Year
  Sex: Male
  Weight: 52.1637 kg

DRUGS (6)
  1. AMBIEN [Suspect]
     Indication: INSOMNIA
     Dosage: 10 MG DAILY PO
     Route: 048
     Dates: start: 20030125, end: 20050531
  2. ATENOLOL [Concomitant]
  3. LUMIGAL EYE DROP [Concomitant]
  4. BISCODYL [Concomitant]
  5. TRIAMTERENE [Concomitant]
  6. PREVACID [Concomitant]

REACTIONS (13)
  - ABNORMAL BEHAVIOUR [None]
  - AMNESIA [None]
  - CONFUSIONAL STATE [None]
  - DISORIENTATION [None]
  - FALL [None]
  - HALLUCINATION [None]
  - HEAD INJURY [None]
  - INCORRECT DOSE ADMINISTERED [None]
  - LIMB INJURY [None]
  - MENTAL STATUS CHANGES [None]
  - MOUTH INJURY [None]
  - POLYTRAUMATISM [None]
  - SLEEP WALKING [None]
